FAERS Safety Report 10040973 (Version 2)
Quarter: 2014Q2

REPORT INFORMATION
  Report Type: Spontaneous
  Country: US (occurrence: US)
  Receive Date: 20140327
  Receipt Date: 20140430
  Transmission Date: 20141212
  Serious: No
  Sender: FDA-Public Use
  Company Number: US-PFIZER INC-2014085042

PATIENT
  Age: 40 Year
  Sex: Female

DRUGS (1)
  1. ALDACTONE [Suspect]
     Indication: ACNE
     Dosage: 25 MG, 2X/DAY
     Route: 048
     Dates: start: 19991201, end: 200003

REACTIONS (4)
  - Drug hypersensitivity [Unknown]
  - Arthralgia [Recovered/Resolved]
  - Serum sickness-like reaction [Unknown]
  - Off label use [Unknown]
